FAERS Safety Report 8010618-5 (Version None)
Quarter: 2011Q4

REPORT INFORMATION
  Report Type: 
  Country: None (occurrence: None)
  Receive Date: 20111228
  Receipt Date: 20111221
  Transmission Date: 20120403
  Serious: Yes (Other)
  Sender: FDA-Public Use
  Company Number: US-TEVA-314704USA

PATIENT
  Sex: Male

DRUGS (1)
  1. SIMVASTATIN [Suspect]
     Dates: start: 20080101, end: 20110101

REACTIONS (2)
  - CONVULSION [None]
  - AMNESIA [None]
